FAERS Safety Report 11291841 (Version 1)
Quarter: 2015Q3

REPORT INFORMATION
  Report Type: Spontaneous
  Country: US (occurrence: None)
  Receive Date: 20150721
  Receipt Date: 20150721
  Transmission Date: 20151125
  Serious: No
  Sender: FDA-Public Use
  Company Number: None

PATIENT
  Age: 67 Year
  Sex: Male
  Weight: 83.92 kg

DRUGS (1)
  1. FLUORIDEX [Suspect]
     Active Substance: STANNOUS FLUORIDE
     Indication: ILL-DEFINED DISORDER
     Route: 048
     Dates: start: 20150211, end: 20150720

REACTIONS (5)
  - Gastrointestinal sounds abnormal [None]
  - Malaise [None]
  - Abdominal discomfort [None]
  - Gastrointestinal pain [None]
  - Dizziness [None]

NARRATIVE: CASE EVENT DATE: 20150717
